FAERS Safety Report 8152314-X (Version None)
Quarter: 2012Q1

REPORT INFORMATION
  Report Type: 
  Country: None (occurrence: None)
  Receive Date: 20120221
  Receipt Date: 20120214
  Transmission Date: 20120608
  Serious: Yes (Hospitalization)
  Sender: FDA-Public Use
  Company Number: US-BAYER-2011-026108

PATIENT
  Age: 25 Year
  Sex: Female
  Weight: 100.68 kg

DRUGS (5)
  1. YAZ [Suspect]
     Indication: POLYCYSTIC OVARIES
  2. IBUPROFEN [Concomitant]
     Dosage: UNK
     Dates: start: 20080801
  3. NAPROXEN [Concomitant]
     Dosage: UNK
     Dates: start: 20090119
  4. PHENTERMINE [Concomitant]
     Indication: WEIGHT DECREASED
     Dosage: UNK
     Dates: start: 20080101, end: 20090201
  5. YAZ [Suspect]
     Indication: CONTRACEPTION
     Dosage: UNK
     Route: 048
     Dates: start: 20090205, end: 20090324

REACTIONS (2)
  - DEEP VEIN THROMBOSIS [None]
  - PULMONARY EMBOLISM [None]
